FAERS Safety Report 6422821-6 (Version None)
Quarter: 2009Q4

REPORT INFORMATION
  Report Type: 
  Country: None (occurrence: None)
  Receive Date: 20091102
  Receipt Date: 20091020
  Transmission Date: 20100525
  Serious: Yes (Other)
  Sender: FDA-Public Use
  Company Number: GR-ELI_LILLY_AND_COMPANY-GR200910004722

PATIENT
  Age: 78 Year
  Sex: Female
  Weight: 56 kg

DRUGS (8)
  1. FORTEO [Suspect]
     Indication: OSTEOPOROSIS
     Dosage: 20 UG, DAILY (1/D)
     Route: 058
     Dates: start: 20091012, end: 20091013
  2. DIGOXIN [Concomitant]
     Indication: CARDIAC FAILURE
     Dosage: UNK UNK, DAILY (1/D)
     Route: 048
     Dates: start: 19940101
  3. SINTROM [Concomitant]
     Indication: CARDIAC FAILURE
     Dosage: 4 MG, DAILY (1/D)
     Route: 048
     Dates: start: 19990101
  4. FRUMIL [Concomitant]
     Indication: HYPERTENSION
     Dosage: UNK, DAILY (1/D)
     Dates: start: 19990101
  5. VASCASE [Concomitant]
     Indication: HYPERTENSION
     Dosage: UNK UNK, DAILY (1/D)
     Route: 048
     Dates: start: 19990101
  6. NORVASC [Concomitant]
     Indication: HYPERTENSION
     Dosage: 5 MG, 3/D
     Route: 048
     Dates: start: 19990101
  7. ONEALFA [Concomitant]
     Indication: OSTEOPOROSIS
     Dosage: UNK, UNK
     Dates: start: 20070101
  8. DIAMICRON [Concomitant]
     Indication: DIABETES MELLITUS
     Dosage: 8 MG, DAILY (1/D)
     Route: 048
     Dates: start: 20070101

REACTIONS (2)
  - NAUSEA [None]
  - TACHYCARDIA [None]
